FAERS Safety Report 11060263 (Version 1)
Quarter: 2015Q2

REPORT INFORMATION
  Report Type: Spontaneous
  Country: US (occurrence: US)
  Receive Date: 20150423
  Receipt Date: 20150423
  Transmission Date: 20150821
  Serious: No
  Sender: FDA-Public Use
  Company Number: US-AMGEN-USASP2015032349

PATIENT
  Age: 51 Year
  Sex: Female

DRUGS (1)
  1. KYPROLIS [Suspect]
     Active Substance: CARFILZOMIB
     Indication: PLASMA CELL MYELOMA
     Dosage: UNK
     Route: 065
     Dates: start: 201403

REACTIONS (3)
  - Constipation [Unknown]
  - Disease progression [Unknown]
  - Insomnia [Unknown]

NARRATIVE: CASE EVENT DATE: 2014
